FAERS Safety Report 7693197-1 (Version None)
Quarter: 2011Q3

REPORT INFORMATION
  Report Type: 
  Country: None (occurrence: None)
  Receive Date: 20110819
  Receipt Date: 20110810
  Transmission Date: 20111222
  Serious: Yes (Other)
  Sender: FDA-Public Use
  Company Number: US-BAYER-201037800NA

PATIENT
  Age: 30 Year
  Sex: Female
  Weight: 63.039 kg

DRUGS (4)
  1. DIFLUCAN [Concomitant]
     Dosage: 150 MG, QD
     Route: 048
  2. PROBIOTICS [Concomitant]
     Route: 048
  3. GRAPE SEED [Concomitant]
     Route: 048
  4. YAZ [Suspect]
     Dosage: UNK
     Route: 048
     Dates: start: 20080301, end: 20080701

REACTIONS (4)
  - CHOLECYSTITIS [None]
  - ABDOMINAL PAIN [None]
  - DYSPEPSIA [None]
  - GALLBLADDER DISORDER [None]
